FAERS Safety Report 25132872 (Version 2)
Quarter: 2025Q2

REPORT INFORMATION
  Report Type: Spontaneous
  Country: DE (occurrence: DE)
  Receive Date: 20250328
  Receipt Date: 20250512
  Transmission Date: 20250716
  Serious: No
  Sender: AMGEN
  Company Number: DE-AMGEN-DEUSP2025057648

PATIENT

DRUGS (1)
  1. PROLIA [Suspect]
     Active Substance: DENOSUMAB
     Indication: Product used for unknown indication
     Dosage: 60 MILLIGRAM, Q6MO
     Route: 065

REACTIONS (1)
  - C-reactive protein increased [Unknown]
